FAERS Safety Report 7969114-3 (Version None)
Quarter: 2011Q4

REPORT INFORMATION
  Report Type: 
  Country: None (occurrence: None)
  Receive Date: 20111209
  Receipt Date: 20111130
  Transmission Date: 20120403
  Serious: Yes (Hospitalization)
  Sender: FDA-Public Use
  Company Number: JP-ROCHE-1009763

PATIENT
  Sex: Female
  Weight: 15 kg

DRUGS (18)
  1. PREDNISOLONE [Concomitant]
     Route: 048
     Dates: start: 20091030, end: 20091112
  2. ACTEMRA [Suspect]
     Route: 041
     Dates: start: 20111007, end: 20111007
  3. PREDNISOLONE [Concomitant]
     Indication: JUVENILE ARTHRITIS
     Route: 048
     Dates: start: 20090524, end: 20090710
  4. PREDNISOLONE [Concomitant]
     Route: 048
     Dates: start: 20090711, end: 20090722
  5. ACTEMRA [Suspect]
     Indication: JUVENILE ARTHRITIS
     Route: 041
     Dates: start: 20100121, end: 20100415
  6. ACTEMRA [Suspect]
     Route: 041
     Dates: start: 20100511, end: 20100610
  7. METHOTREXATE [Concomitant]
     Indication: JUVENILE ARTHRITIS
     Route: 048
     Dates: start: 20091201
  8. ACTEMRA [Suspect]
     Route: 041
     Dates: start: 20100902, end: 20110218
  9. PREDNISOLONE [Concomitant]
     Route: 048
     Dates: start: 20090723, end: 20090916
  10. ACTEMRA [Suspect]
     Route: 041
     Dates: start: 20100708, end: 20100805
  11. ACTEMRA [Suspect]
     Route: 041
     Dates: start: 20110310, end: 20110916
  12. IBRUPROFEN [Concomitant]
     Indication: JUVENILE ARTHRITIS
     Route: 048
     Dates: start: 20090428, end: 20100201
  13. ACTEMRA [Suspect]
     Route: 041
     Dates: start: 20111104
  14. PREDNISOLONE [Concomitant]
     Route: 048
     Dates: start: 20090917, end: 20091027
  15. PREDNISOLONE [Concomitant]
     Route: 048
     Dates: start: 20091113, end: 20100101
  16. PREDNISOLONE [Concomitant]
     Route: 048
     Dates: start: 20101101, end: 20111028
  17. FOLIC ACID [Concomitant]
     Indication: JUVENILE ARTHRITIS
     Route: 048
     Dates: start: 20091201
  18. ONON [Concomitant]
     Indication: ASTHMA
     Route: 048
     Dates: start: 20110106

REACTIONS (1)
  - JUVENILE ARTHRITIS [None]
